FAERS Safety Report 5131733-X (Version None)
Quarter: 2006Q4

REPORT INFORMATION
  Report Type: 
  Country: None (occurrence: None)
  Receive Date: 20061016
  Receipt Date: 20060926
  Transmission Date: 20070319
  Serious: Yes (Hospitalization)
  Sender: FDA-Public Use
  Company Number: JP200609007247

PATIENT
  Age: 55 Year
  Sex: Female
  Weight: 38.2 kg

DRUGS (7)
  1. OLANZAPINE [Suspect]
     Indication: SCHIZOPHRENIA, PARANOID TYPE
     Dosage: SEE IMAGE
     Route: 048
     Dates: start: 20060714, end: 20060720
  2. OLANZAPINE [Suspect]
     Indication: SCHIZOPHRENIA, PARANOID TYPE
     Dosage: SEE IMAGE
     Route: 048
     Dates: start: 20060721, end: 20060726
  3. RISPERDAL   /SWE/(RISPERIDONE) [Concomitant]
  4. TASMOLIN (BIPERIDEN) [Concomitant]
  5. RIVOTRIL  /NOR/(CLONAZEPAM) [Concomitant]
  6. BESACOLIN (BETHANECHOL CHLORIDE) [Concomitant]
  7. MAGNESIUM OXIDE (MAGNESIUM OXIDE) [Concomitant]

REACTIONS (1)
  - MEIGE'S SYNDROME [None]
